FAERS Safety Report 9994968 (Version 1)
Quarter: 2014Q1

REPORT INFORMATION
  Report Type: Spontaneous
  Country: US (occurrence: US)
  Receive Date: 20140311
  Receipt Date: 20140311
  Transmission Date: 20141002
  Serious: Yes (Death, Other)
  Sender: FDA-Public Use
  Company Number: PHHY2014US027741

PATIENT
  Sex: 0

DRUGS (3)
  1. OCTREOTIDE [Suspect]
     Route: 041
  2. INOTROP [Suspect]
  3. INDOCYANINE GREEN [Suspect]
     Route: 023

REACTIONS (5)
  - Death [Fatal]
  - Lymphatic obstruction [Unknown]
  - Ascites [Unknown]
  - General physical health deterioration [Unknown]
  - Drug ineffective [Unknown]
